FAERS Safety Report 8549559-3 (Version None)
Quarter: 2012Q3

REPORT INFORMATION
  Report Type: 
  Country: None (occurrence: None)
  Receive Date: 20120730
  Receipt Date: 20120726
  Transmission Date: 20120928
  Serious: Yes (Other)
  Sender: FDA-Public Use
  Company Number: US-PFIZER INC-2012176501

PATIENT
  Sex: Female

DRUGS (1)
  1. PROTONIX [Suspect]
     Indication: REFLUX GASTRITIS
     Dosage: 40 MG, 1X/DAY (TAKING 40 MG A DAY)

REACTIONS (2)
  - DIABETES MELLITUS [None]
  - ABDOMINAL DISTENSION [None]
